FAERS Safety Report 15364272 (Version 17)
Quarter: 2023Q1

REPORT INFORMATION
  Report Type: Spontaneous
  Country: GB (occurrence: GB)
  Receive Date: 20180909
  Receipt Date: 20230304
  Transmission Date: 20230417
  Serious: Yes (Hospitalization)
  Sender: FDA-Public Use
  Company Number: PHHY2017GB204768

PATIENT
  Age: 49 Year
  Sex: Female

DRUGS (115)
  1. LETROZOLE [Suspect]
     Active Substance: LETROZOLE
     Indication: Product used for unknown indication
     Dosage: 2.5 MG, QD
     Route: 042
     Dates: start: 20150729
  2. LETROZOLE [Suspect]
     Active Substance: LETROZOLE
     Dosage: 2.5 MG, QD
     Route: 048
     Dates: start: 20150729
  3. LETROZOLE [Suspect]
     Active Substance: LETROZOLE
     Dosage: UNK
     Route: 048
     Dates: start: 20170201
  4. DOCETAXEL [Suspect]
     Active Substance: DOCETAXEL
     Indication: Product used for unknown indication
     Dosage: 130 MG, TIW (NUMBER OF CYCLE PER REGIMEN 6)
     Route: 042
     Dates: start: 20150210, end: 20150708
  5. DOCETAXEL [Suspect]
     Active Substance: DOCETAXEL
     Dosage: UNK
     Route: 065
  6. DOCETAXEL [Suspect]
     Active Substance: DOCETAXEL
     Dosage: UNK
     Route: 065
  7. DOCETAXEL [Suspect]
     Active Substance: DOCETAXEL
     Dosage: 2.5 MG, QD (2.5 MILLIGRAMS PER DAY (CUMULATIVE DOSE: 314.89584 G)
     Route: 048
     Dates: start: 20150729
  8. DOCETAXEL [Suspect]
     Active Substance: DOCETAXEL
     Dosage: UNK
     Route: 048
     Dates: start: 20170201, end: 20170722
  9. TRASTUZUMAB [Suspect]
     Active Substance: TRASTUZUMAB
     Indication: Breast cancer metastatic
     Dosage: 399 MG, TIW (CUMULATIVE DOSE: 950.0MG)
     Route: 042
     Dates: start: 20150203, end: 20150203
  10. TRASTUZUMAB [Suspect]
     Active Substance: TRASTUZUMAB
     Indication: Breast cancer
     Dosage: 504 MG, QD (LOADING DOSE)
     Route: 042
     Dates: start: 20150209, end: 20150209
  11. TRASTUZUMAB [Suspect]
     Active Substance: TRASTUZUMAB
     Dosage: 378 MG, TIW
     Route: 042
     Dates: start: 20150210
  12. TRASTUZUMAB [Suspect]
     Active Substance: TRASTUZUMAB
     Dosage: 378 MG, Q3W (MAINTENANCE DOSE)
     Route: 042
     Dates: start: 20150303, end: 20170201
  13. TRASTUZUMAB [Suspect]
     Active Substance: TRASTUZUMAB
     Dosage: 378 MG, TIW (378 MILLIGRAM EVERY 3 WEEKS (CUMULATIVE DOSE: 4896.0 MG))
     Route: 042
     Dates: start: 20151222, end: 20160113
  14. TRASTUZUMAB [Suspect]
     Active Substance: TRASTUZUMAB
     Dosage: 399 MG, Q3W (399.00 MILLIGRAMS Q3W - EVERY 3 WEEKS)
     Route: 042
     Dates: start: 20151111, end: 20151202
  15. TRASTUZUMAB [Suspect]
     Active Substance: TRASTUZUMAB
     Dosage: 399 MG, TIW (SUBSEQUENT DOSE RECEIVED ON 11/NOV/2018)
     Route: 042
     Dates: start: 20160203, end: 20160203
  16. TRASTUZUMAB [Suspect]
     Active Substance: TRASTUZUMAB
     Dosage: 378 MG, Q3W
     Route: 042
     Dates: start: 20160210
  17. TRASTUZUMAB [Suspect]
     Active Substance: TRASTUZUMAB
     Dosage: 378 MG, TIW (378 MILLIGRAM EVERY 3 WEEKS (CUMULATIVE DOSE TO FIRST REACTION: 6048.0 MG))
     Route: 042
     Dates: start: 20160224, end: 20160406
  18. TRASTUZUMAB [Suspect]
     Active Substance: TRASTUZUMAB
     Dosage: 420 MG, TIW (420 MILLIGRAM EVERY 3 WEEKS (CUMULATIVE DOSE: 7979.16666 MG))
     Route: 042
     Dates: start: 20160427, end: 20170111
  19. TRASTUZUMAB [Suspect]
     Active Substance: TRASTUZUMAB
     Dosage: 420 MG, Q3W
     Route: 042
     Dates: start: 20160404, end: 20170111
  20. TRASTUZUMAB [Suspect]
     Active Substance: TRASTUZUMAB
     Dosage: 378 MG, Q3W (378.00 MILLIGRAMS Q3W- EVERY 3 WEEKS)
     Route: 042
     Dates: start: 20150303, end: 20151021
  21. TRASTUZUMAB [Suspect]
     Active Substance: TRASTUZUMAB
     Dosage: 240 MG
     Route: 042
     Dates: start: 20170201
  22. PERTUZUMAB [Suspect]
     Active Substance: PERTUZUMAB
     Indication: Breast cancer metastatic
     Dosage: 420 MG, TIW
     Route: 042
     Dates: start: 20150209, end: 20170201
  23. PERTUZUMAB [Suspect]
     Active Substance: PERTUZUMAB
     Indication: Breast cancer
     Dosage: 840 MG, QD LOADING DOSE
     Route: 042
     Dates: start: 20150209, end: 20150209
  24. PERTUZUMAB [Suspect]
     Active Substance: PERTUZUMAB
     Dosage: 420 MG, TIW (EVERY 3 WEEKS (CUMULATIVE DOSE: 880.0 MG))
     Route: 042
     Dates: start: 20150209, end: 20170201
  25. PERTUZUMAB [Suspect]
     Active Substance: PERTUZUMAB
     Dosage: 420 MG, TIW
     Route: 040
     Dates: start: 20150304, end: 20170201
  26. PERTUZUMAB [Suspect]
     Active Substance: PERTUZUMAB
     Dosage: 840 MG, QD (LOADING DOSE)
     Route: 042
     Dates: start: 20150209, end: 20150209
  27. PERTUZUMAB [Suspect]
     Active Substance: PERTUZUMAB
     Dosage: 420 MG, TIW (MAINTENANCE DOSE)
     Route: 042
     Dates: start: 20150210
  28. PERTUZUMAB [Suspect]
     Active Substance: PERTUZUMAB
     Dosage: 420 MG, TIW (MAINTENANCE DOSE SUBSEQUENT DOSE RECEIVED ON 22/DEC/2015, 24/FEB/2016)
     Route: 065
     Dates: start: 20150204
  29. PERTUZUMAB [Suspect]
     Active Substance: PERTUZUMAB
     Dosage: 420 MG, TIW (MAINTENANCE DOSE)
     Route: 042
  30. PERTUZUMAB [Suspect]
     Active Substance: PERTUZUMAB
     Dosage: 430 MG, TIW (MAINTENANCE DOSE)
     Route: 042
  31. PERTUZUMAB [Suspect]
     Active Substance: PERTUZUMAB
     Dosage: 430 MG, TIW MAINTENANCE DOSE
     Route: 042
  32. PERTUZUMAB [Suspect]
     Active Substance: PERTUZUMAB
     Dosage: 420 MG EVERY 3 WEEKS MAINTENANCE DOSE
     Route: 042
  33. PERTUZUMAB [Suspect]
     Active Substance: PERTUZUMAB
     Dosage: 430 MG (430 EVERY 3 WEEKS MAINTENANCE DOSE)
     Route: 042
  34. PERTUZUMAB [Suspect]
     Active Substance: PERTUZUMAB
     Dosage: 430 EVERY 3 WEEKS MAINTENANCE DOSE
     Route: 042
  35. PERTUZUMAB [Suspect]
     Active Substance: PERTUZUMAB
     Dosage: 430 EVERY 3 WEEKS MAINTENANCE DOSE
     Route: 042
  36. PERTUZUMAB [Suspect]
     Active Substance: PERTUZUMAB
     Dosage: 430 MG, TIW (MAINTENANCE DOSE SUBSEQUENT DOSE RECEIVED ON 22 DEC 2015, 24 FEB 2016) (CUMULATIVE DOSE
     Route: 042
     Dates: start: 20150204
  37. ADO-TRASTUZUMAB EMTANSINE [Suspect]
     Active Substance: ADO-TRASTUZUMAB EMTANSINE
     Indication: Breast cancer metastatic
     Dosage: 504 MG, QD (LOADING DOSE)
     Route: 042
  38. ADO-TRASTUZUMAB EMTANSINE [Suspect]
     Active Substance: ADO-TRASTUZUMAB EMTANSINE
     Indication: Breast cancer
     Dosage: 240 MG, Q3W (240.00 MILLIGRAMS Q3W - EVERY 3 WEEKS)
     Route: 042
     Dates: start: 20170201, end: 20170722
  39. ADO-TRASTUZUMAB EMTANSINE [Suspect]
     Active Substance: ADO-TRASTUZUMAB EMTANSINE
     Dosage: 230 MG, Q3W (230.00 MILLIGRAMS Q3W - EVERY 3 WEEKS)
     Route: 042
     Dates: start: 20170816
  40. ADO-TRASTUZUMAB EMTANSINE [Suspect]
     Active Substance: ADO-TRASTUZUMAB EMTANSINE
     Dosage: UNK
     Route: 042
  41. ADO-TRASTUZUMAB EMTANSINE [Suspect]
     Active Substance: ADO-TRASTUZUMAB EMTANSINE
     Dosage: 504 MG, QD
     Route: 042
  42. AMOXICILLIN [Concomitant]
     Active Substance: AMOXICILLIN
     Indication: Product used for unknown indication
     Dosage: 500 MG, TID
     Route: 048
     Dates: start: 20160816, end: 20160821
  43. AMOXICILLIN [Concomitant]
     Active Substance: AMOXICILLIN
     Dosage: 500 MG, TID
     Route: 048
     Dates: start: 20161015, end: 20161023
  44. AMOXICILLIN [Concomitant]
     Active Substance: AMOXICILLIN
     Dosage: 500 MG, TID
     Route: 048
     Dates: start: 20170821, end: 20170826
  45. NAPROXEN [Concomitant]
     Active Substance: NAPROXEN
     Indication: Product used for unknown indication
     Dosage: 250 MG (SUBSEQUENT DOSE RECEIVED ON 16 JAN 2017, 02 AUG 2017)
     Route: 048
     Dates: start: 20141128
  46. NAPROXEN [Concomitant]
     Active Substance: NAPROXEN
     Dosage: 250 MG (SUBSEQUENT DOSE RECEIVED ON 16 JAN 2017, 02 AUG 2017)
     Route: 048
     Dates: start: 20141128, end: 20191015
  47. NAPROXEN [Concomitant]
     Active Substance: NAPROXEN
     Dosage: 250 MG, (UNCOATED, ORAL)
     Route: 048
     Dates: start: 20170116, end: 20170116
  48. NAPROXEN [Concomitant]
     Active Substance: NAPROXEN
     Dosage: 250 MG
     Route: 048
     Dates: start: 20170802, end: 20170807
  49. NAPROXEN [Concomitant]
     Active Substance: NAPROXEN
     Dosage: 250 MG
     Route: 048
     Dates: start: 20170802
  50. NAPROXEN [Concomitant]
     Active Substance: NAPROXEN
     Dosage: 250 MG, PRN (UNCOATED, ORAL), AS NECESSARY
     Route: 048
  51. DEXAMETHASONE [Concomitant]
     Active Substance: DEXAMETHASONE
     Indication: Product used for unknown indication
     Dosage: 16 MG, QD (UNCOATED, ORAL)(CUMULATIVE DOSE TO FIRST REACTION: 624.0 MG)
     Route: 048
     Dates: start: 20150524, end: 20150708
  52. DEXAMETHASONE [Concomitant]
     Active Substance: DEXAMETHASONE
     Dosage: 16 MG, QD
     Route: 048
     Dates: start: 20150527, end: 20150708
  53. DEXAMETHASONE [Concomitant]
     Active Substance: DEXAMETHASONE
     Dosage: 4 MG, QD
     Route: 048
     Dates: start: 20170531, end: 20170602
  54. DEXAMETHASONE [Concomitant]
     Active Substance: DEXAMETHASONE
     Dosage: 4 MG, QD (CUMULATIVE DOSE: 736 MG)
     Route: 048
     Dates: start: 20170531, end: 20170602
  55. DEXAMETHASONE [Concomitant]
     Active Substance: DEXAMETHASONE
     Dosage: 2 MG, QD
     Route: 048
     Dates: start: 20170616, end: 20170616
  56. DEXAMETHASONE [Concomitant]
     Active Substance: DEXAMETHASONE
     Dosage: 4 MG, BID (0.5 DAY)
     Route: 048
     Dates: start: 20170616, end: 20170617
  57. DEXAMETHASONE [Concomitant]
     Active Substance: DEXAMETHASONE
     Dosage: 2 MG, QD
     Route: 048
     Dates: start: 20170620, end: 20170621
  58. DEXAMETHASONE [Concomitant]
     Active Substance: DEXAMETHASONE
     Dosage: 8 MG, QD
     Route: 048
  59. DEXAMETHASONE [Concomitant]
     Active Substance: DEXAMETHASONE
     Dosage: 2 MG, DAILY (UNCOATED, ORAL) (CUMULATIVE DOSE TO FIRST REACTION: 1560.0 MG )
     Route: 048
     Dates: start: 20170603, end: 20170604
  60. DEXAMETHASONE [Concomitant]
     Active Substance: DEXAMETHASONE
     Dosage: 4 MG, BID (0.5 DAY)
     Route: 048
     Dates: start: 20170616, end: 20170617
  61. DEXAMETHASONE [Concomitant]
     Active Substance: DEXAMETHASONE
     Dosage: 8 MG, QD
     Route: 048
     Dates: start: 20170616, end: 20170617
  62. DEXAMETHASONE [Concomitant]
     Active Substance: DEXAMETHASONE
     Dosage: 4 MG, BID ((CUMULATIVE DOSE: 6511.66666 MG))
     Route: 048
     Dates: start: 20170618, end: 20170619
  63. DEXAMETHASONE [Concomitant]
     Active Substance: DEXAMETHASONE
     Dosage: 2 MG, QD
     Route: 048
     Dates: start: 20170620, end: 20170621
  64. DEXAMETHASONE [Concomitant]
     Active Substance: DEXAMETHASONE
     Dosage: 4 MG (CUMULATIVE DOSE: 736 MG)
     Route: 048
     Dates: start: 20170616, end: 20170619
  65. DEXAMETHASONE [Concomitant]
     Active Substance: DEXAMETHASONE
     Dosage: 8 MG, BID
     Route: 065
     Dates: start: 20150527, end: 20150708
  66. DEXAMETHASONE [Concomitant]
     Active Substance: DEXAMETHASONE
     Dosage: 4 MG
     Route: 065
     Dates: start: 20170616, end: 20170619
  67. DEXAMETHASONE [Concomitant]
     Active Substance: DEXAMETHASONE
     Dosage: 8 MG, QD (CUMULATIVE DOSE: 736 MG)
     Route: 048
  68. DEXAMETHASONE [Concomitant]
     Active Substance: DEXAMETHASONE
     Dosage: 8 MG, QD
     Route: 048
     Dates: start: 20170616, end: 20220617
  69. DEXAMETHASONE [Concomitant]
     Active Substance: DEXAMETHASONE
     Dosage: 8 MG, BID (0.5 DAY) (CUMULATIVE DOSE: 736 MG)
     Route: 048
     Dates: start: 20150527, end: 20150707
  70. ONDANSETRON [Concomitant]
     Active Substance: ONDANSETRON
     Indication: Product used for unknown indication
     Dosage: 16 MG (8 MG, BID)
     Route: 042
     Dates: start: 20150527, end: 20150608
  71. ONDANSETRON [Concomitant]
     Active Substance: ONDANSETRON
     Dosage: 8 MG (0.5 DAYS)
     Route: 065
     Dates: start: 20150527, end: 20150608
  72. ZOMETA [Concomitant]
     Active Substance: ZOLEDRONIC ACID
     Indication: Product used for unknown indication
     Dosage: 3 MG
     Route: 042
     Dates: start: 20151111
  73. LANSOPRAZOLE [Concomitant]
     Active Substance: LANSOPRAZOLE
     Indication: Product used for unknown indication
     Dosage: 30 MG, QD
     Route: 048
     Dates: start: 20151123
  74. LANSOPRAZOLE [Concomitant]
     Active Substance: LANSOPRAZOLE
     Dosage: UNK
     Route: 048
     Dates: start: 20150306, end: 20150306
  75. LANSOPRAZOLE [Concomitant]
     Active Substance: LANSOPRAZOLE
     Dosage: 30 MG, QD
     Route: 048
     Dates: start: 20161123
  76. OMEPRAZOLE [Concomitant]
     Active Substance: OMEPRAZOLE
     Indication: Product used for unknown indication
     Dosage: 20 MG SUBSEQUENT DOSE RECEIVED ON 21 JUN 2017 (UNCOATED, ORAL)
     Route: 042
     Dates: start: 20170530, end: 20170530
  77. OMEPRAZOLE [Concomitant]
     Active Substance: OMEPRAZOLE
     Dosage: 40 MG (0.5 DAY)
     Route: 048
     Dates: start: 20170531, end: 20170605
  78. OMEPRAZOLE [Concomitant]
     Active Substance: OMEPRAZOLE
     Dosage: 20 MG, QD (CUMULATIVE DOSE: 240 MG)
     Route: 060
     Dates: start: 20170616, end: 20170621
  79. OMEPRAZOLE [Concomitant]
     Active Substance: OMEPRAZOLE
     Dosage: 40 MG (0.5 DAY)
     Route: 065
     Dates: start: 20170531, end: 20170605
  80. SUDAFED NASAL DECONGESTANT MAXIMUM STRENGTH [Concomitant]
     Active Substance: PSEUDOEPHEDRINE HYDROCHLORIDE
     Indication: Product used for unknown indication
     Dosage: 60 MG, PRN (UNCOATED, ORAL) AS NECESSARY)
     Route: 048
     Dates: start: 20160113, end: 20160203
  81. SUDAFED NASAL DECONGESTANT MAXIMUM STRENGTH [Concomitant]
     Active Substance: PSEUDOEPHEDRINE HYDROCHLORIDE
     Dosage: 60 MG, PRN (UNCOATED, ORAL) AS NECESSARY)
     Route: 048
     Dates: start: 20160113
  82. CALCIUM CARBONATE\CHOLECALCIFEROL [Concomitant]
     Active Substance: CALCIUM CARBONATE\CHOLECALCIFEROL
     Indication: Product used for unknown indication
     Dosage: 1.5 G, BID (PROPHALATIC TREATMENT WITH LETROZOLE)
     Route: 048
     Dates: start: 20150629, end: 20151202
  83. CALCIUM CARBONATE\CHOLECALCIFEROL [Concomitant]
     Active Substance: CALCIUM CARBONATE\CHOLECALCIFEROL
     Dosage: 1.5 G, BID
     Route: 065
     Dates: start: 20150729, end: 20151202
  84. CALCIUM CARBONATE\CHOLECALCIFEROL [Concomitant]
     Active Substance: CALCIUM CARBONATE\CHOLECALCIFEROL
     Dosage: 1.5 G, TID (0.33  DAY)
     Route: 048
     Dates: start: 20151203, end: 20190813
  85. CALCIUM CARBONATE\CHOLECALCIFEROL [Concomitant]
     Active Substance: CALCIUM CARBONATE\CHOLECALCIFEROL
     Dosage: 1.5 G
     Route: 065
     Dates: start: 20151203, end: 20190813
  86. BETAMETHASONE VALERATE\FUSIDIC ACID [Concomitant]
     Active Substance: BETAMETHASONE VALERATE\FUSIDIC ACID
     Indication: Product used for unknown indication
     Dosage: 0.1 %, PRN
     Route: 061
     Dates: start: 20151123
  87. FYBOGEL [Concomitant]
     Active Substance: HERBALS\PLANTAGO OVATA SEED
     Indication: Constipation
     Dosage: 3.50 G (GRAM) LIQUID PO (ORAL) BID (TWICE A DAY)
     Route: 048
     Dates: start: 20150312, end: 20150314
  88. FYBOGEL [Concomitant]
     Active Substance: HERBALS\PLANTAGO OVATA SEED
     Dosage: 3.5 G
     Route: 048
     Dates: start: 20150314
  89. FYBOGEL [Concomitant]
     Active Substance: HERBALS\PLANTAGO OVATA SEED
     Dosage: UNK
     Route: 065
  90. FYBOGEL [Concomitant]
     Active Substance: HERBALS\PLANTAGO OVATA SEED
     Dosage: 3.5 G
     Route: 065
     Dates: start: 20150312
  91. METOCLOPRAMIDE [Concomitant]
     Active Substance: METOCLOPRAMIDE
     Indication: Product used for unknown indication
     Dosage: 30 MG, QW 30MG QD (UNCOATED, ORAL)(CUMULATIVE DOSE TO FIRST REACTION: 1260.0 MG)
     Route: 050
     Dates: start: 20150527, end: 20150708
  92. METOCLOPRAMIDE [Concomitant]
     Active Substance: METOCLOPRAMIDE
     Dosage: 10 MG
     Route: 048
     Dates: start: 20170510, end: 2017
  93. METOCLOPRAMIDE [Concomitant]
     Active Substance: METOCLOPRAMIDE
     Dosage: UNK (2 OTHER (CUMULATIVE DOSE: 1290 MG))
     Route: 065
     Dates: start: 20170510
  94. METOCLOPRAMIDE [Concomitant]
     Active Substance: METOCLOPRAMIDE
     Dosage: 400 MG (CUMULATIVE DOSE: 1290 MG)
     Route: 065
     Dates: start: 20171001, end: 20171008
  95. PEGFILGRASTIM [Concomitant]
     Active Substance: PEGFILGRASTIM
     Indication: Product used for unknown indication
     Dosage: 6 MG, TIW (CUMULATIVE DOSE: 48 MG)
     Route: 058
     Dates: start: 20150211, end: 20150709
  96. PEGFILGRASTIM [Concomitant]
     Active Substance: PEGFILGRASTIM
     Dosage: 6 MG
     Route: 065
     Dates: start: 20150211, end: 20150709
  97. MOVICOL [Concomitant]
     Active Substance: POLYETHYLENE GLYCOL 3350\POTASSIUM CHLORIDE\SODIUM BICARBONATE\SODIUM CHLORIDE
     Indication: Product used for unknown indication
     Dosage: 2 OTHER
     Route: 048
     Dates: start: 20170510
  98. LOPERAMIDE [Concomitant]
     Active Substance: LOPERAMIDE
     Indication: Product used for unknown indication
     Dosage: 4 MG (UNCOATED, ORAL)
     Route: 048
     Dates: start: 20150306, end: 20150308
  99. MICONAZOLE NITRATE [Concomitant]
     Active Substance: MICONAZOLE NITRATE
     Indication: Rash
     Dosage: 40 MG, QD (CUMULATIVE DOSE TO FIRST REACTION: 23761.666 MG)
     Route: 061
     Dates: start: 20161129, end: 20170101
  100. AMOXICILLIN\CLAVULANATE POTASSIUM [Concomitant]
     Active Substance: AMOXICILLIN\CLAVULANATE POTASSIUM
     Indication: Product used for unknown indication
     Dosage: 500 MG
     Route: 048
     Dates: start: 20170926
  101. AMOXICILLIN\CLAVULANATE POTASSIUM [Concomitant]
     Active Substance: AMOXICILLIN\CLAVULANATE POTASSIUM
     Dosage: 500 MG
     Route: 048
     Dates: start: 20171001, end: 20171008
  102. AMOXICILLIN\CLAVULANATE POTASSIUM [Concomitant]
     Active Substance: AMOXICILLIN\CLAVULANATE POTASSIUM
     Dosage: 400 MG, BID
     Route: 065
     Dates: start: 20171030, end: 20171105
  103. AMOXICILLIN\CLAVULANATE POTASSIUM [Concomitant]
     Active Substance: AMOXICILLIN\CLAVULANATE POTASSIUM
     Dosage: 500 MG, TID
     Route: 048
     Dates: start: 20180526, end: 20180601
  104. AMOXICILLIN\CLAVULANATE POTASSIUM [Concomitant]
     Active Substance: AMOXICILLIN\CLAVULANATE POTASSIUM
     Dosage: 500 MG
     Route: 048
     Dates: start: 20190530, end: 20190606
  105. METRONIDAZOLE [Concomitant]
     Active Substance: METRONIDAZOLE
     Indication: Product used for unknown indication
     Dosage: 500 MG (0.33 DAY)
     Route: 048
     Dates: start: 20171030, end: 20171105
  106. METRONIDAZOLE [Concomitant]
     Active Substance: METRONIDAZOLE
     Dosage: 500 MG (0.33 DAY)
     Route: 065
     Dates: start: 20171030, end: 20171105
  107. METRONIDAZOLE [Concomitant]
     Active Substance: METRONIDAZOLE
     Dosage: 400 MG
     Route: 065
     Dates: start: 20171001, end: 20171008
  108. METRONIDAZOLE [Concomitant]
     Active Substance: METRONIDAZOLE
     Dosage: 400 MG
     Route: 065
     Dates: start: 20171001, end: 20171008
  109. BENZYDAMINE [Concomitant]
     Active Substance: BENZYDAMINE
     Indication: Product used for unknown indication
     Dosage: 10 ML, PRN (MOUTHWASH)
     Route: 065
     Dates: start: 20150307, end: 20150311
  110. CHLORHEXIDINE GLUCONATE [Concomitant]
     Active Substance: CHLORHEXIDINE GLUCONATE
     Indication: Product used for unknown indication
     Dosage: 10 ML
     Route: 065
     Dates: start: 20171001, end: 20171008
  111. CHLORHEXIDINE GLUCONATE [Concomitant]
     Active Substance: CHLORHEXIDINE GLUCONATE
     Dosage: UNK
     Route: 065
  112. CHLORHEXIDINE GLUCONATE [Concomitant]
     Active Substance: CHLORHEXIDINE GLUCONATE
     Dosage: UNK
     Route: 065
  113. ACETAMINOPHEN [Concomitant]
     Active Substance: ACETAMINOPHEN
     Indication: Product used for unknown indication
     Dosage: 2000 MG, QID (500 MG, QID)
     Route: 048
     Dates: start: 20171001, end: 20171008
  114. ACETAMINOPHEN [Concomitant]
     Active Substance: ACETAMINOPHEN
     Dosage: UNK
     Route: 065
  115. ACETAMINOPHEN [Concomitant]
     Active Substance: ACETAMINOPHEN
     Dosage: UNK
     Route: 065

REACTIONS (18)
  - Tooth abscess [Recovered/Resolved]
  - Neuropathy peripheral [Recovered/Resolved]
  - Blood calcium decreased [Recovered/Resolved]
  - Tooth loss [Recovered/Resolved]
  - Dermatitis acneiform [Recovered/Resolved with Sequelae]
  - Skin fissures [Recovered/Resolved]
  - Facial pain [Recovered/Resolved]
  - Pain in jaw [Not Recovered/Not Resolved]
  - Weight decreased [Recovered/Resolved]
  - Anxiety [Recovered/Resolved]
  - Alopecia [Recovered/Resolved]
  - Dry skin [Recovered/Resolved]
  - Arthralgia [Recovered/Resolved]
  - Back pain [Recovered/Resolved]
  - Tooth abscess [Not Recovered/Not Resolved]
  - Onychomadesis [Recovered/Resolved]
  - Tooth infection [Recovered/Resolved]
  - Joint stiffness [Recovered/Resolved]

NARRATIVE: CASE EVENT DATE: 20150325
